FAERS Safety Report 6938472-0 (Version None)
Quarter: 2010Q3

REPORT INFORMATION
  Report Type: 
  Country: None (occurrence: None)
  Receive Date: 20100824
  Receipt Date: 20100812
  Transmission Date: 20110219
  Serious: Yes (Other)
  Sender: FDA-Public Use
  Company Number: CA-JNJFOC-20100804979

PATIENT
  Sex: Female

DRUGS (2)
  1. REMICADE [Suspect]
     Indication: CROHN'S DISEASE
     Route: 042
  2. CORTISONE ACETATE [Concomitant]
     Indication: CROHN'S DISEASE

REACTIONS (2)
  - CROHN'S DISEASE [None]
  - DRUG EXPOSURE DURING PREGNANCY [None]
